FAERS Safety Report 24156822 (Version 1)
Quarter: 2024Q3

REPORT INFORMATION
  Report Type: Spontaneous
  Country: TW (occurrence: TW)
  Receive Date: 20240731
  Receipt Date: 20240731
  Transmission Date: 20241016
  Serious: Yes (Hospitalization)
  Sender: PFIZER
  Company Number: TW-PFIZER INC-PV202400099405

PATIENT
  Sex: Female

DRUGS (1)
  1. XELJANZ XR [Suspect]
     Active Substance: TOFACITINIB CITRATE
     Indication: Rheumatoid arthritis
     Dosage: 11MG/QD
     Route: 048
     Dates: start: 20191001

REACTIONS (2)
  - Lymphoma [Not Recovered/Not Resolved]
  - Intestinal ischaemia [Recovered/Resolved with Sequelae]
